FAERS Safety Report 9052806 (Version 3)
Quarter: 2014Q3

REPORT INFORMATION
  Report Type: Spontaneous
  Country: US (occurrence: US)
  Receive Date: 20130207
  Receipt Date: 20140701
  Transmission Date: 20150326
  Serious: Yes (Hospitalization, Other)
  Sender: FDA-Public Use
  Company Number: US-009507513-1302USA002865

PATIENT
  Sex: Female
  Weight: 108.84 kg

DRUGS (1)
  1. NUVARING [Suspect]
     Active Substance: ETHINYL ESTRADIOL\ETONOGESTREL
     Indication: CONTRACEPTION
     Dosage: UNK
     Route: 067
     Dates: start: 200905, end: 200907

REACTIONS (15)
  - Deep vein thrombosis [Unknown]
  - Thrombosis [Unknown]
  - Ear infection [Recovering/Resolving]
  - Haematuria [Recovered/Resolved]
  - Anaemia [Unknown]
  - Pulmonary embolism [Unknown]
  - Appendicitis [Unknown]
  - Renal failure [Unknown]
  - Furuncle [Recovering/Resolving]
  - Coagulopathy [Unknown]
  - Contrast media reaction [Unknown]
  - Urinary tract infection staphylococcal [Unknown]
  - Hypokalaemia [Unknown]
  - Cellulitis [Unknown]
  - Sinusitis [Recovering/Resolving]

NARRATIVE: CASE EVENT DATE: 200907
